FAERS Safety Report 15404639 (Version 2)
Quarter: 2018Q4

REPORT INFORMATION
  Report Type: Spontaneous
  Country: US (occurrence: US)
  Receive Date: 20180919
  Receipt Date: 20181119
  Transmission Date: 20190204
  Serious: No
  Sender: FDA-Public Use
  Company Number: US-GLAXOSMITHKLINE-US2018165436

PATIENT
  Sex: Female

DRUGS (2)
  1. COREG [Suspect]
     Active Substance: CARVEDILOL
     Dosage: 25 MG, Z
  2. COREG [Suspect]
     Active Substance: CARVEDILOL
     Indication: PRODUCT USED FOR UNKNOWN INDICATION
     Dosage: 12.5 MG, BID

REACTIONS (13)
  - Malaise [Unknown]
  - Drug effect incomplete [Unknown]
  - Pain [Unknown]
  - Skin discolouration [Not Recovered/Not Resolved]
  - Myalgia [Not Recovered/Not Resolved]
  - Joint swelling [Unknown]
  - Adverse drug reaction [Unknown]
  - Cardiac disorder [Unknown]
  - Condition aggravated [Unknown]
  - Product complaint [Unknown]
  - Burning sensation [Not Recovered/Not Resolved]
  - Vein disorder [Unknown]
  - Expired product administered [Unknown]
